FAERS Safety Report 20329041 (Version 1)
Quarter: 2022Q1

REPORT INFORMATION
  Report Type: Spontaneous
  Country: ES (occurrence: ES)
  Receive Date: 20220112
  Receipt Date: 20220112
  Transmission Date: 20220424
  Serious: Yes (Hospitalization, Other)
  Sender: FDA-Public Use
  Company Number: None

PATIENT
  Age: 42 Year
  Sex: Male
  Weight: 131 kg

DRUGS (2)
  1. XENICAL [Suspect]
     Active Substance: ORLISTAT
     Indication: Hepatic steatosis
     Dosage: UNK
     Route: 065
  2. ORLISTAT [Suspect]
     Active Substance: ORLISTAT
     Indication: Hepatic steatosis
     Dosage: 240 MG, QD
     Route: 065

REACTIONS (5)
  - Acute hepatic failure [Recovered/Resolved]
  - Encephalopathy [Recovered/Resolved]
  - Coagulopathy [Unknown]
  - Oliguria [Recovered/Resolved]
  - Hepatitis acute [Recovered/Resolved]
